FAERS Safety Report 18690980 (Version 16)
Quarter: 2021Q4

REPORT INFORMATION
  Report Type: Report from Study
  Country: BR (occurrence: BR)
  Receive Date: 20210101
  Receipt Date: 20211005
  Transmission Date: 20220303
  Serious: Yes (Death, Other)
  Sender: FDA-Public Use
  Company Number: BR-ROCHE-2435150

PATIENT
  Age: 81 Year
  Sex: Male
  Weight: 64 kg

DRUGS (16)
  1. COBIMETINIB [Suspect]
     Active Substance: COBIMETINIB
     Indication: Malignant melanoma
     Dosage: LAST DOSE OF COBIMETINIB PRIOR TO SAE ONSET ON 17/DEC/2019 AND 18/DEC/2019?ON 02/OCT/2019, LAST DOSE
     Route: 048
     Dates: start: 20190606
  2. COBIMETINIB [Suspect]
     Active Substance: COBIMETINIB
     Indication: Metastases to central nervous system
  3. ATEZOLIZUMAB [Suspect]
     Active Substance: ATEZOLIZUMAB
     Indication: Malignant melanoma
     Dosage: LAST DOSE OF ATEZOLIZUMAB PRIOR TO SAE ONSET ON 11/DEC/2019 AT 14:15 AND 14:45?ON 25/SEP/2019, LAST
     Route: 041
     Dates: start: 20190703
  4. ATEZOLIZUMAB [Suspect]
     Active Substance: ATEZOLIZUMAB
     Indication: Metastases to central nervous system
  5. VEMURAFENIB [Suspect]
     Active Substance: VEMURAFENIB
     Indication: Malignant melanoma
     Dosage: LAST DOSE OF VEMURAFENIB (720 MG) PRIOR TO SAE ONSET ON 17/DEC/2019 AND 27/DEC/2019?ON 02/OCT/2019,
     Route: 048
     Dates: start: 20190606
  6. VEMURAFENIB [Suspect]
     Active Substance: VEMURAFENIB
     Indication: Metastases to central nervous system
  7. MINERAL OIL [Concomitant]
     Active Substance: MINERAL OIL
  8. DIPYRONE [Concomitant]
     Active Substance: DIPYRONE
  9. MIRTAZAPINE [Concomitant]
     Active Substance: MIRTAZAPINE
  10. METOCLOPRAMIDE HYDROCHLORIDE [Concomitant]
     Active Substance: METOCLOPRAMIDE HYDROCHLORIDE
  11. FLEET ENEMA [Concomitant]
     Active Substance: SODIUM PHOSPHATE, DIBASIC\SODIUM PHOSPHATE, MONOBASIC
  12. LATANOPROST [Concomitant]
     Active Substance: LATANOPROST
  13. DEXAMETHASONE [Concomitant]
     Active Substance: DEXAMETHASONE
  14. BISACODYL [Concomitant]
     Active Substance: BISACODYL
  15. LACTULOSE [Concomitant]
     Active Substance: LACTULOSE
  16. METFORMIN [Concomitant]
     Active Substance: METFORMIN HYDROCHLORIDE

REACTIONS (3)
  - General physical health deterioration [Fatal]
  - Retinal detachment [Not Recovered/Not Resolved]
  - Serous retinal detachment [Not Recovered/Not Resolved]

NARRATIVE: CASE EVENT DATE: 20191002
